FAERS Safety Report 12532963 (Version 1)
Quarter: 2016Q3

REPORT INFORMATION
  Report Type: Spontaneous
  Country: US (occurrence: US)
  Receive Date: 20160706
  Receipt Date: 20160706
  Transmission Date: 20161109
  Serious: No
  Sender: FDA-Public Use
  Company Number: US-009507513-1606USA011071

PATIENT
  Age: 18 Year
  Sex: Female
  Weight: 74.83 kg

DRUGS (1)
  1. NEXPLANON [Suspect]
     Active Substance: ETONOGESTREL
     Indication: CONTRACEPTION
     Dosage: 68 MG/ 1 ROD EVERY 3 YEARS
     Route: 059
     Dates: start: 20150603

REACTIONS (7)
  - Headache [Not Recovered/Not Resolved]
  - Menorrhagia [Not Recovered/Not Resolved]
  - Device kink [Not Recovered/Not Resolved]
  - Vomiting [Not Recovered/Not Resolved]
  - Peripheral swelling [Not Recovered/Not Resolved]
  - Amenorrhoea [Not Recovered/Not Resolved]
  - Depression [Not Recovered/Not Resolved]
